FAERS Safety Report 23302921 (Version 1)
Quarter: 2023Q4

REPORT INFORMATION
  Report Type: Spontaneous
  Country: US (occurrence: US)
  Receive Date: 20231215
  Receipt Date: 20231215
  Transmission Date: 20240110
  Serious: No
  Sender: FDA-Public Use
  Company Number: US-PRIMUS-2023-US-003759

PATIENT
  Age: 59 Year
  Sex: Female

DRUGS (2)
  1. IMPOYZ [Suspect]
     Active Substance: CLOBETASOL PROPIONATE
     Indication: Rash
     Dosage: APPLY TOPICALLY TO RASH TWICE A DAY FOR 1 MONTH, THEN ONCE DAILY FOR 1 MONTH, THEN EVERY OTHER DAY F
     Route: 061
  2. DEVICE [Suspect]
     Active Substance: DEVICE

REACTIONS (3)
  - Rash [Recovered/Resolved]
  - Condition aggravated [Unknown]
  - Incorrect product administration duration [Unknown]
